FAERS Safety Report 9263167 (Version 2)
Quarter: 2013Q4

REPORT INFORMATION
  Report Type: Report from Study
  Country: ES (occurrence: ES)
  Receive Date: 20130430
  Receipt Date: 20131223
  Transmission Date: 20140711
  Serious: Yes (Hospitalization, Other)
  Sender: FDA-Public Use
  Company Number: ES-ELI_LILLY_AND_COMPANY-ES201304007046

PATIENT
  Age: 81 Year
  Sex: Female

DRUGS (2)
  1. TERIPARATIDE [Suspect]
     Indication: OSTEOPOROSIS
     Dosage: 20 UG, QD
     Route: 058
     Dates: start: 20121121
  2. TERIPARATIDE [Suspect]
     Dosage: 20 UG, QD
     Route: 058

REACTIONS (9)
  - Dizziness [Unknown]
  - Hypertension [Unknown]
  - Oedema peripheral [Unknown]
  - Bronchial disorder [Unknown]
  - Haemorrhage [Unknown]
  - Haematoma [Unknown]
  - Upper limb fracture [Unknown]
  - Fall [Unknown]
  - Joint swelling [Unknown]
